FAERS Safety Report 8026488-5 (Version None)
Quarter: 2012Q1

REPORT INFORMATION
  Report Type: 
  Country: None (occurrence: None)
  Receive Date: 20120105
  Receipt Date: 20111223
  Transmission Date: 20120608
  Serious: Yes (Congenital Anomaly)
  Sender: FDA-Public Use
  Company Number: FR-MYLANLABS-2011S1026487

PATIENT
  Sex: Male

DRUGS (2)
  1. METHADONE HCL [Suspect]
     Indication: DRUG DEPENDENCE
     Dosage: (MEAN DOSAGE) 42 +/- 32 MG/DAY AT START OF PREGNANCY; DECREASED TO 38 +/- 31 MG/DAY
     Route: 064
  2. METHADONE HCL [Suspect]
     Dosage: (MEAN DOSAGE) 38 +/- 31 MG/DAY AT END OF PREGNACY
     Route: 064

REACTIONS (7)
  - DEFORMITY THORAX [None]
  - LIMB DEFORMITY [None]
  - MICROPENIS [None]
  - CONGENITAL CYSTIC KIDNEY DISEASE [None]
  - SYNDACTYLY [None]
  - DYSMORPHISM [None]
  - MATERNAL EXPOSURE DURING PREGNANCY [None]
